FAERS Safety Report 4316209-1 (Version None)
Quarter: 2004Q1

REPORT INFORMATION
  Report Type: 
  Country: None (occurrence: None)
  Receive Date: 20040312
  Receipt Date: 20040302
  Transmission Date: 20041129
  Serious: Yes (Hospitalization)
  Sender: FDA-Public Use
  Company Number: SE-GLAXOSMITHKLINE-B0325634A

PATIENT
  Age: 68 Year
  Sex: Male

DRUGS (5)
  1. SEROXAT [Suspect]
     Indication: DEPRESSION
     Dosage: 20MG PER DAY
     Route: 048
     Dates: start: 20020501, end: 20030501
  2. ALFUZOSIN HYDROCHLORIDE [Concomitant]
     Dosage: 10MG PER DAY
  3. PROPIOMAZINE MALEATE [Concomitant]
     Dosage: 25MG PER DAY
  4. WARFARIN SODIUM [Concomitant]
     Dosage: 2.5MG PER DAY
  5. ENALAPRIL MALEATE [Concomitant]
     Dosage: 10MG PER DAY

REACTIONS (7)
  - CARDIAC FAILURE [None]
  - CONDITION AGGRAVATED [None]
  - DILATATION VENTRICULAR [None]
  - DYSPNOEA EXERTIONAL [None]
  - HYPERTENSION [None]
  - PULMONARY HYPERTENSION [None]
  - VENTRICULAR DYSFUNCTION [None]
